FAERS Safety Report 20144699 (Version 1)
Quarter: 2021Q4

REPORT INFORMATION
  Report Type: Spontaneous
  Country: US (occurrence: None)
  Receive Date: 20211202
  Receipt Date: 20211202
  Transmission Date: 20220303
  Serious: Yes (Hospitalization)
  Sender: FDA-Public Use
  Company Number: None

PATIENT
  Age: 69 Year
  Sex: Male
  Weight: 73.9 kg

DRUGS (1)
  1. LISOCABTAGENE MARALEUCEL [Suspect]
     Active Substance: LISOCABTAGENE MARALEUCEL
     Indication: Diffuse large B-cell lymphoma
     Dosage: FREQUENCY : ONCE;?
     Route: 042
     Dates: start: 20211008, end: 20211008

REACTIONS (7)
  - Mental status changes [None]
  - Disease progression [None]
  - Respiratory distress [None]
  - Acute respiratory failure [None]
  - Pulmonary alveolar haemorrhage [None]
  - Orthostatic hypotension [None]
  - Hospice care [None]

NARRATIVE: CASE EVENT DATE: 20211008
